FAERS Safety Report 10080699 (Version 1)
Quarter: 2014Q2

REPORT INFORMATION
  Report Type: Spontaneous
  Country: GB (occurrence: None)
  Receive Date: 20140414
  Receipt Date: 20140414
  Transmission Date: 20141212
  Serious: Yes (Other)
  Sender: FDA-Public Use
  Company Number: AUR-APL-2014-04184

PATIENT
  Age: 17 Year
  Sex: Male
  Weight: 47 kg

DRUGS (3)
  1. FLUOXETINE (FLUOXETINE) [Suspect]
     Indication: ANXIETY DISORDER
     Route: 048
     Dates: start: 20131211, end: 20140302
  2. FLUOXETINE (FLUOXETINE) [Suspect]
     Indication: AFFECTIVE DISORDER
     Route: 048
     Dates: start: 20131211, end: 20140302
  3. RISPERIDONE (RISPERIDONE) [Concomitant]

REACTIONS (1)
  - Petit mal epilepsy [None]
